FAERS Safety Report 9691332 (Version 3)
Quarter: 2014Q1

REPORT INFORMATION
  Report Type: Spontaneous
  Country: JP (occurrence: JP)
  Receive Date: 20131115
  Receipt Date: 20140114
  Transmission Date: 20141002
  Serious: Yes (Hospitalization, Other)
  Sender: FDA-Public Use
  Company Number: JP-009507513-1311JPN005666

PATIENT
  Age: 89 Year
  Sex: Female

DRUGS (3)
  1. JANUVIA TABLETS 50MG [Suspect]
     Indication: DIABETES MELLITUS
     Dosage: 50 MG, QD
     Route: 048
     Dates: start: 20130726, end: 201311
  2. GASMOTIN [Concomitant]
     Dosage: UNK
     Route: 065
     Dates: start: 20131101
  3. DOMPERIN [Concomitant]
     Dosage: UNK
     Route: 065
     Dates: start: 20131101

REACTIONS (2)
  - Gastric cancer [Unknown]
  - Gastric dilatation [Not Recovered/Not Resolved]
